FAERS Safety Report 5026697-3 (Version None)
Quarter: 2006Q2

REPORT INFORMATION
  Report Type: 
  Country: None (occurrence: None)
  Receive Date: 20060426
  Receipt Date: 20051230
  Transmission Date: 20061013
  Serious: No
  Sender: FDA-Public Use
  Company Number: 2006002330

PATIENT
  Age: 40 Year
  Sex: Female
  Weight: 63.5036 kg

DRUGS (5)
  1. LYRICA [Suspect]
     Indication: DIABETIC NEUROPATHY
     Dosage: 75 MG (25 MG, 3 IN 1 D),
     Dates: start: 20051221, end: 20051223
  2. NOVOLOG [Concomitant]
  3. PROTONIX [Concomitant]
  4. MACROGOL (MACROGOL) [Concomitant]
  5. EFFEXOR XR [Concomitant]

REACTIONS (1)
  - NAUSEA [None]
